FAERS Safety Report 7070595-0 (Version None)
Quarter: 2010Q4

REPORT INFORMATION
  Report Type: 
  Country: None (occurrence: None)
  Receive Date: 20101029
  Receipt Date: 20101025
  Transmission Date: 20110411
  Serious: Yes (Other)
  Sender: FDA-Public Use
  Company Number: US-PFIZER INC-2010105716

PATIENT
  Sex: Male

DRUGS (13)
  1. CHANTIX [Suspect]
     Indication: SMOKING CESSATION THERAPY
     Dosage: STARTING PACK AND TWO CONTINUE PACKS
     Dates: start: 20070830, end: 20071101
  2. NITROGLYCERIN [Concomitant]
     Indication: CHEST PAIN
     Dosage: UNK
     Dates: start: 20020201, end: 20080401
  3. VALIUM [Concomitant]
     Indication: PAIN
     Dosage: UNK
     Dates: start: 20030301, end: 20080601
  4. MIRALAX [Concomitant]
     Indication: CONSTIPATION
     Dosage: UNK
     Dates: start: 20060801, end: 20080701
  5. ALPHAGAN [Concomitant]
     Indication: INTRAOCULAR PRESSURE DECREASED
     Dosage: UNK
     Dates: start: 20070801, end: 20070901
  6. METHADONE [Concomitant]
     Indication: PAIN
     Dosage: UNK
     Dates: start: 20050301, end: 20070901
  7. DIFLUNISAL [Concomitant]
     Indication: PAIN
     Dosage: UNK
     Dates: start: 20050801, end: 20080601
  8. VERAPAMIL [Concomitant]
     Indication: HYPERTENSION
     Dosage: UNK
     Dates: start: 20050801, end: 20080601
  9. TRICOR [Concomitant]
     Indication: BLOOD CHOLESTEROL INCREASED
     Dosage: UNK
     Dates: start: 20050901, end: 20080601
  10. ACYCLOVIR SODIUM [Concomitant]
     Indication: HERPES ZOSTER
     Dosage: UNK
     Dates: start: 20070801, end: 20071201
  11. METOCLOPRAMIDE [Concomitant]
     Indication: DYSPEPSIA
     Dosage: UNK
     Dates: start: 20070901, end: 20070901
  12. TRUSOPT [Concomitant]
     Indication: ABNORMAL SENSATION IN EYE
     Dosage: UNK
     Dates: start: 20070901, end: 20070901
  13. MARIJUANA [Concomitant]
     Indication: PAIN
     Dosage: UNK
     Dates: start: 19940101

REACTIONS (6)
  - ABNORMAL BEHAVIOUR [None]
  - AGGRESSION [None]
  - ANXIETY [None]
  - DEPRESSION [None]
  - MENTAL DISORDER [None]
  - SUICIDAL IDEATION [None]
